FAERS Safety Report 4658530-3 (Version None)
Quarter: 2005Q2

REPORT INFORMATION
  Report Type: 
  Country: None (occurrence: None)
  Receive Date: 20050511
  Receipt Date: 20050426
  Transmission Date: 20051028
  Serious: Yes (Death)
  Sender: FDA-Public Use
  Company Number: CH-JNJFOC-20050500111

PATIENT
  Sex: Male

DRUGS (10)
  1. HALDOL [Suspect]
     Indication: DRUG USE FOR UNKNOWN INDICATION
     Dosage: 5 - 9 MG
     Route: 049
     Dates: start: 20040712, end: 20040716
  2. DEPAKENE [Suspect]
     Indication: DRUG USE FOR UNKNOWN INDICATION
     Dosage: 150 - 2000 MG
     Route: 049
  3. AKINETON [Suspect]
     Indication: DRUG USE FOR UNKNOWN INDICATION
     Route: 049
  4. DILATREND [Concomitant]
     Route: 049
  5. ALDACTONE [Concomitant]
     Route: 049
  6. TORSEMIDE [Concomitant]
     Dosage: 40 - 70 MG
     Route: 049
  7. SORTIS [Concomitant]
     Route: 049
  8. CONVERSUM [Concomitant]
     Dosage: 4 - 8 MG
     Route: 049
  9. MARCUMAR [Concomitant]
     Dosage: 1.5 - 3 MG
     Route: 049
  10. NITRODERM [Concomitant]

REACTIONS (20)
  - ABDOMINAL PAIN [None]
  - ABDOMINAL PAIN LOWER [None]
  - ABDOMINAL RIGIDITY [None]
  - AGGRESSION [None]
  - CARDIAC FAILURE [None]
  - CEREBRAL ATROPHY [None]
  - COAGULATION TIME PROLONGED [None]
  - DEMENTIA [None]
  - DISORIENTATION [None]
  - DYSPNOEA [None]
  - FALL [None]
  - GAIT DISTURBANCE [None]
  - HAEMATOMA [None]
  - HYPERPHAGIA [None]
  - INSOMNIA [None]
  - INTERNATIONAL NORMALISED RATIO INCREASED [None]
  - PAIN [None]
  - POLYDIPSIA [None]
  - URINARY INCONTINENCE [None]
  - VOMITING [None]
